FAERS Safety Report 7816581-1 (Version None)
Quarter: 2011Q4

REPORT INFORMATION
  Report Type: 
  Country: None (occurrence: None)
  Receive Date: 20111017
  Receipt Date: 20111012
  Transmission Date: 20120403
  Serious: Yes (Other)
  Sender: FDA-Public Use
  Company Number: NL-PFIZER INC-2011243418

PATIENT
  Age: 67 Year
  Sex: Female

DRUGS (4)
  1. OXYCODONE [Concomitant]
     Dosage: 20 MG/DAY
  2. ANASTROZOLE [Concomitant]
     Dosage: UNK
  3. LYRICA [Suspect]
     Indication: NEURALGIA
  4. LYRICA [Suspect]
     Indication: MUSCULOSKELETAL DISCOMFORT
     Dosage: 75 MG, 1X/DAY

REACTIONS (5)
  - SKIN HYPERTROPHY [None]
  - ARTHROPATHY [None]
  - DISTURBANCE IN ATTENTION [None]
  - SOMNOLENCE [None]
  - SKIN DISORDER [None]
